FAERS Safety Report 7702066-X (Version None)
Quarter: 2011Q3

REPORT INFORMATION
  Report Type: 
  Country: None (occurrence: None)
  Receive Date: 20110822
  Receipt Date: 20110811
  Transmission Date: 20111222
  Serious: Yes (Other)
  Sender: FDA-Public Use
  Company Number: AR-GENZYME-POMP-1001549

PATIENT
  Age: 44 Year
  Sex: Male
  Weight: 64 kg

DRUGS (4)
  1. MYOZYME [Suspect]
     Dosage: 20 MG/KG, UNK
     Route: 042
     Dates: start: 20110412
  2. LORAZEPAM [Concomitant]
     Indication: SLEEP DISORDER THERAPY
     Dosage: UNK
     Route: 065
  3. MYOZYME [Suspect]
     Indication: GLYCOGEN STORAGE DISEASE TYPE II
     Dosage: 20 MG/KG, UNK
     Route: 042
     Dates: start: 20060808
  4. MYOZYME [Suspect]
     Dosage: 20 MG/KG, Q2W
     Route: 042
     Dates: start: 20110329

REACTIONS (3)
  - FLUSHING [None]
  - DYSPNOEA [None]
  - HYPERTENSIVE CRISIS [None]
